FAERS Safety Report 4873823-2 (Version None)
Quarter: 2005Q4

REPORT INFORMATION
  Report Type: 
  Country: None (occurrence: None)
  Receive Date: 20051201
  Receipt Date: 20050808
  Transmission Date: 20060501
  Serious: No
  Sender: FDA-Public Use
  Company Number: 2005PV000970

PATIENT
  Age: 61 Year
  Sex: Female
  Weight: 67.1324 kg

DRUGS (6)
  1. BYETTA [Suspect]
     Indication: DIABETES MELLITUS NON-INSULIN-DEPENDENT
     Dosage: 5 MCG; BID, SC
     Route: 058
     Dates: start: 20050701
  2. GLUCOPHAGE [Concomitant]
  3. LIPITOR [Concomitant]
  4. ALTACE [Concomitant]
  5. COZAAR [Concomitant]
  6. ASCORBIC ACID [Concomitant]

REACTIONS (6)
  - BLOOD GLUCOSE INCREASED [None]
  - DECREASED APPETITE [None]
  - DYSPEPSIA [None]
  - GASTROOESOPHAGEAL REFLUX DISEASE [None]
  - NAUSEA [None]
  - STOMACH DISCOMFORT [None]
